FAERS Safety Report 18980450 (Version 1)
Quarter: 2021Q1

REPORT INFORMATION
  Report Type: Report from Study
  Country: NL (occurrence: NL)
  Receive Date: 20210308
  Receipt Date: 20210308
  Transmission Date: 20210420
  Serious: Yes (Hospitalization)
  Sender: FDA-Public Use
  Company Number: NL-ROCHE-2783818

PATIENT
  Age: 65 Year
  Sex: Female

DRUGS (3)
  1. LOPERAMIDE [Concomitant]
     Active Substance: LOPERAMIDE
     Dates: start: 20210204
  2. VEMURAFENIB. [Suspect]
     Active Substance: VEMURAFENIB
     Indication: MALIGNANT NEOPLASM OF UNKNOWN PRIMARY SITE
     Dosage: ON 02/MAR/2021, SHE RECEIVED THE MOST RECENT DOSE OF VEMURAFENIB PRIOR TO SERIOUS ADVERSE EVENT ONSE
     Route: 048
     Dates: start: 20190221
  3. COBIMETINIB. [Suspect]
     Active Substance: COBIMETINIB
     Indication: MALIGNANT NEOPLASM OF UNKNOWN PRIMARY SITE
     Dosage: ON 02/MAR/2021, SHE RECEIVED THE MOST RECENT DOSE OF COBIMETINIB PRIOR TO SERIOUS ADVERSE EVENT ONSE
     Route: 048
     Dates: start: 20190221

REACTIONS (1)
  - Malaise [Not Recovered/Not Resolved]

NARRATIVE: CASE EVENT DATE: 20210302
